FAERS Safety Report 23809084 (Version 1)
Quarter: 2024Q2

REPORT INFORMATION
  Report Type: Spontaneous
  Country: US (occurrence: US)
  Receive Date: 20240502
  Receipt Date: 20240502
  Transmission Date: 20240715
  Serious: Yes (Other)
  Sender: FDA-Public Use
  Company Number: US-DRL-USA-LIT/USA/24/0006493

PATIENT
  Age: 36 Year
  Sex: Male

DRUGS (3)
  1. DOXYCYCLINE [Suspect]
     Active Substance: DOXYCYCLINE
     Indication: Brucellosis
     Dosage: 100 MG BID
  2. CEFTRIAXONE [Concomitant]
     Active Substance: CEFTRIAXONE\CEFTRIAXONE SODIUM
     Indication: Brucellosis
     Dosage: 2 G BID
  3. RIFAMPIN [Concomitant]
     Active Substance: RIFAMPIN
     Indication: Brucellosis

REACTIONS (4)
  - Drug ineffective for unapproved indication [Unknown]
  - Ataxia [Unknown]
  - Cerebrovascular accident [Unknown]
  - Polyneuropathy [Unknown]
